FAERS Safety Report 9308394 (Version 1)
Quarter: 2013Q2

REPORT INFORMATION
  Report Type: Spontaneous
  Country: US (occurrence: US)
  Receive Date: 20130524
  Receipt Date: 20130524
  Transmission Date: 20140414
  Serious: Yes (Other)
  Sender: FDA-Public Use
  Company Number: US-PFIZER INC-2013157129

PATIENT
  Sex: Female

DRUGS (3)
  1. XELJANZ [Suspect]
     Dosage: UNK
  2. AMBIEN [Concomitant]
     Dosage: UNK
  3. MAGNESIUM [Concomitant]
     Dosage: 400 MG, DAILY

REACTIONS (8)
  - Hypertension [Unknown]
  - Urinary tract infection [Unknown]
  - Epistaxis [Unknown]
  - Confusional state [Unknown]
  - Dizziness [Unknown]
  - Nausea [Unknown]
  - Headache [Unknown]
  - Magnesium deficiency [Unknown]
